FAERS Safety Report 12639788 (Version 1)
Quarter: 2016Q3

REPORT INFORMATION
  Report Type: Spontaneous
  Country: US (occurrence: None)
  Receive Date: 20160809
  Receipt Date: 20160809
  Transmission Date: 20161109
  Serious: Yes (Disabling, Other)
  Sender: FDA-Public Use
  Company Number: None

PATIENT
  Age: 53 Year
  Sex: Female
  Weight: 69.85 kg

DRUGS (11)
  1. OMEGA-3-6-9 [Concomitant]
  2. CHROMIUM PICOLINATE [Concomitant]
     Active Substance: CHROMIUM PICOLINATE
  3. BLACK COHOSH [Concomitant]
     Active Substance: BLACK COHOSH
  4. TAPAZOLE (IC METHIMAZOLE) [Concomitant]
  5. CALCIUM-MAGNESIUM-ZINC-D3 [Concomitant]
  6. DUAVEE [Suspect]
     Active Substance: BAZEDOXIFENE ACETATE\ESTROGENS, CONJUGATED
     Indication: HOT FLUSH
     Dosage: 0.45MG/20 MG, 1 PILL ONCE DAILY, BY MOUTH
     Route: 048
     Dates: start: 20151209, end: 20151223
  7. ZINC [Concomitant]
     Active Substance: ZINC\ZINC CHLORIDE
  8. POTASSIUM GLUCONATE [Concomitant]
     Active Substance: POTASSIUM GLUCONATE
  9. EFFEXOR ER (VENLAFAXINE) [Concomitant]
  10. DUAVEE [Suspect]
     Active Substance: BAZEDOXIFENE ACETATE\ESTROGENS, CONJUGATED
     Indication: NIGHT SWEATS
     Dosage: 0.45MG/20 MG, 1 PILL ONCE DAILY, BY MOUTH
     Route: 048
     Dates: start: 20151209, end: 20151223
  11. LIFE FORCE MULT. VITAMIN [Concomitant]

REACTIONS (8)
  - Tremor [None]
  - Peripheral swelling [None]
  - Joint swelling [None]
  - Muscular weakness [None]
  - Vomiting [None]
  - Hyperthyroidism [None]
  - Nausea [None]
  - Libido decreased [None]

NARRATIVE: CASE EVENT DATE: 20151209
